FAERS Safety Report 17592710 (Version 5)
Quarter: 2021Q3

REPORT INFORMATION
  Report Type: Spontaneous
  Country: PL (occurrence: PL)
  Receive Date: 20200327
  Receipt Date: 20210913
  Transmission Date: 20211014
  Serious: Yes (Life-Threatening, Hospitalization, Other)
  Sender: FDA-Public Use
  Company Number: PL-MYLANLABS-2020M1032903

PATIENT
  Age: 52 Year
  Sex: Female

DRUGS (5)
  1. METOPROLOL. [Suspect]
     Active Substance: METOPROLOL
     Indication: SINUS TACHYCARDIA
     Dosage: LONG?TERM THERAPY; CONTROLLED?RELEASE DOSE,100MG/D
     Route: 048
  2. DULOXETINE. [Interacting]
     Active Substance: DULOXETINE
     Indication: ANXIETY DISORDER
     Dosage: 30 MILLIGRAM, QD
     Route: 048
  3. LANSOPRAZOLE MYLAN [Interacting]
     Active Substance: LANSOPRAZOLE
     Indication: GASTROOESOPHAGEAL REFLUX DISEASE
     Dosage: 15 MILLIGRAM, QD
     Route: 048
  4. DULOXETINE. [Interacting]
     Active Substance: DULOXETINE
     Indication: GENERALISED ANXIETY DISORDER
     Dosage: UNK
     Route: 065
  5. METOCLOPRAMIDE. [Interacting]
     Active Substance: METOCLOPRAMIDE
     Indication: GASTROOESOPHAGEAL REFLUX DISEASE
     Dosage: 30 MILLIGRAM, QD
     Route: 048

REACTIONS (11)
  - Reflux gastritis [Unknown]
  - Illness [Unknown]
  - Presyncope [Unknown]
  - Bradycardia [Unknown]
  - Syncope [Unknown]
  - Sinus bradycardia [Unknown]
  - Off label use [Unknown]
  - Drug interaction [Unknown]
  - Loss of consciousness [Unknown]
  - Dyspepsia [Unknown]
  - Abdominal pain upper [Unknown]
